FAERS Safety Report 13123142 (Version 2)
Quarter: 2017Q2

REPORT INFORMATION
  Report Type: Report from Study
  Country: BR (occurrence: BR)
  Receive Date: 20170117
  Receipt Date: 20170426
  Transmission Date: 20170830
  Serious: Yes (Other)
  Sender: FDA-Public Use
  Company Number: BR-ALEXION-A201700257

PATIENT
  Age: 24 Year
  Sex: Female

DRUGS (2)
  1. SOLIRIS [Suspect]
     Active Substance: ECULIZUMAB
     Indication: HAEMOLYTIC URAEMIC SYNDROME
     Dosage: 900 MG, QW (FOUR WEEKS)
     Route: 042
     Dates: start: 20160913, end: 20161006
  2. SOLIRIS [Suspect]
     Active Substance: ECULIZUMAB
     Dosage: 1200 MG, Q2W
     Route: 042
     Dates: start: 20161011

REACTIONS (6)
  - Blood creatinine increased [Unknown]
  - Syncope [Recovered/Resolved]
  - Nausea [Unknown]
  - Renal function test abnormal [Not Recovered/Not Resolved]
  - Hypotension [Recovered/Resolved]
  - Laboratory test abnormal [Unknown]

NARRATIVE: CASE EVENT DATE: 20161219
